FAERS Safety Report 25083672 (Version 1)
Quarter: 2025Q1

REPORT INFORMATION
  Report Type: Spontaneous
  Country: US (occurrence: None)
  Receive Date: 20250314
  Receipt Date: 20250314
  Transmission Date: 20250408
  Serious: Yes (Hospitalization)
  Sender: FDA-CTU
  Company Number: None

PATIENT
  Sex: Male

DRUGS (12)
  1. TOBRAMYCIN [Suspect]
     Active Substance: TOBRAMYCIN
     Indication: Cystic fibrosis lung
     Dosage: FREQUENCY : TWICE A DAY;?
     Route: 055
     Dates: start: 202312
  2. CAYSTON [Suspect]
     Active Substance: AZTREONAM
  3. PULMOZYME [Suspect]
     Active Substance: DORNASE ALFA
  4. CREON [Suspect]
     Active Substance: PANCRELIPASE AMYLASE\PANCRELIPASE LIPASE\PANCRELIPASE PROTEASE
  5. PROCHLORPERAZINE [Concomitant]
     Active Substance: PROCHLORPERAZINE
  6. ONDANSETRON [Concomitant]
     Active Substance: ONDANSETRON
  7. MIRTAZAPINE [Concomitant]
     Active Substance: MIRTAZAPINE
  8. VITAMIN D3 [Concomitant]
     Active Substance: CHOLECALCIFEROL
  9. DEKAS PLUS LIQ [Concomitant]
  10. CREON DR 6000UNITS [Concomitant]
  11. CAYSTON INH SOLN [Concomitant]
  12. PULMOZYME [Concomitant]
     Active Substance: DORNASE ALFA

REACTIONS (1)
  - Lung transplant [None]
